FAERS Safety Report 11686994 (Version 1)
Quarter: 2015Q4

REPORT INFORMATION
  Report Type: Spontaneous
  Country: US (occurrence: US)
  Receive Date: 20151030
  Receipt Date: 20151030
  Transmission Date: 20160304
  Serious: Yes (Other)
  Sender: FDA-Public Use
  Company Number: US-BRISTOL-MYERS SQUIBB COMPANY-BMS-2015-072098

PATIENT
  Sex: Male

DRUGS (1)
  1. ETOPOPHOS [Suspect]
     Active Substance: ETOPOSIDE PHOSPHATE
     Indication: PROSTATE CANCER
     Dosage: 1 DF, UNK
     Route: 065

REACTIONS (2)
  - Pain in extremity [Unknown]
  - Malignant neoplasm progression [Unknown]
